FAERS Safety Report 9036179 (Version 1)
Quarter: 2013Q1

REPORT INFORMATION
  Report Type: Spontaneous
  Country: US (occurrence: None)
  Receive Date: 20130117
  Receipt Date: 20130117
  Transmission Date: 20140127
  Serious: Yes (Hospitalization)
  Sender: FDA-Public Use
  Company Number: None

PATIENT
  Age: 91 Year
  Sex: Female
  Weight: 58.97 kg

DRUGS (1)
  1. KETOCONAZOLE [Suspect]
     Dosage: 10-2-2012  TWICE DAILY 90 GRAMS?CURRENT
     Dates: start: 20121002

REACTIONS (4)
  - No therapeutic response [None]
  - Gait disturbance [None]
  - Limb discomfort [None]
  - Product outer packaging issue [None]
